FAERS Safety Report 25945652 (Version 1)
Quarter: 2025Q4

REPORT INFORMATION
  Report Type: Report from Study
  Country: CA (occurrence: None)
  Receive Date: 20251021
  Receipt Date: 20251021
  Transmission Date: 20260118
  Serious: Yes (Other)
  Sender: UCB
  Company Number: CA-UCBSA-2025065793

PATIENT
  Age: 61 Year

DRUGS (3)
  1. BIMEKIZUMAB [Suspect]
     Active Substance: BIMEKIZUMAB
     Indication: Psoriasis
     Dosage: 320 MILLIGRAM, EV 4 WEEKS
  2. VITAMIN D NOS [Concomitant]
     Active Substance: CHOLECALCIFEROL\ERGOCALCIFEROL
     Indication: Product used for unknown indication
  3. CHOLESTEROL [Concomitant]
     Active Substance: CHOLESTEROL
     Indication: Product used for unknown indication

REACTIONS (1)
  - Pneumonia [Not Recovered/Not Resolved]
